FAERS Safety Report 20029236 (Version 1)
Quarter: 2021Q4

REPORT INFORMATION
  Report Type: Spontaneous
  Country: FR (occurrence: FR)
  Receive Date: 20211103
  Receipt Date: 20211103
  Transmission Date: 20220304
  Serious: Yes (Disabling, Other)
  Sender: FDA-Public Use
  Company Number: None

PATIENT
  Age: 71 Year
  Sex: Female
  Weight: 65 kg

DRUGS (4)
  1. EPHEDRINE [Suspect]
     Active Substance: EPHEDRINE
     Indication: Congenital myasthenic syndrome
     Dosage: 75 MG, QD
     Route: 048
     Dates: start: 20201111, end: 20210119
  2. ALBUTEROL [Suspect]
     Active Substance: ALBUTEROL
     Indication: Congenital myasthenic syndrome
     Dosage: 10 MG, QD
     Route: 048
     Dates: start: 20201101, end: 20201110
  3. ALBUTEROL [Suspect]
     Active Substance: ALBUTEROL
     Indication: Congenital myasthenic syndrome
     Dosage: 6 MG, QD
     Route: 048
     Dates: start: 20201022, end: 20201031
  4. URSODIOL [Concomitant]
     Active Substance: URSODIOL
     Indication: Product used for unknown indication
     Dosage: UNK
     Route: 065

REACTIONS (2)
  - Myasthenia gravis [Recovering/Resolving]
  - Product supply issue [Recovered/Resolved]

NARRATIVE: CASE EVENT DATE: 20201022
